FAERS Safety Report 7377291-0 (Version None)
Quarter: 2011Q1

REPORT INFORMATION
  Report Type: 
  Country: None (occurrence: None)
  Receive Date: 20110328
  Receipt Date: 20110317
  Transmission Date: 20110831
  Serious: Yes (Other)
  Sender: FDA-Public Use
  Company Number: GB-JNJFOC-20110106875

PATIENT
  Sex: Female
  Weight: 95.5 kg

DRUGS (2)
  1. DURAGESIC-100 [Suspect]
     Route: 062
  2. DURAGESIC-100 [Suspect]
     Indication: MUSCULOSKELETAL PAIN
     Route: 062

REACTIONS (7)
  - SLEEP DISORDER [None]
  - FATIGUE [None]
  - AGGRESSION [None]
  - PERSONALITY CHANGE [None]
  - EMOTIONAL DISORDER [None]
  - FEELING COLD [None]
  - PRODUCT QUALITY ISSUE [None]
